FAERS Safety Report 9504062 (Version 1)
Quarter: 2013Q3

REPORT INFORMATION
  Report Type: Spontaneous
  Country: US (occurrence: None)
  Receive Date: 20130905
  Receipt Date: 20130905
  Transmission Date: 20140515
  Serious: Yes (Death, Hospitalization)
  Sender: FDA-Public Use
  Company Number: None

PATIENT
  Age: 71 Year
  Sex: Male
  Weight: 62.14 kg

DRUGS (1)
  1. BIVALIRUDIN [Suspect]
     Dosage: 0.75MG/KG BOLUS  INTRAVENOUS
     Route: 042
     Dates: start: 20130829, end: 20130829

REACTIONS (4)
  - Chest pain [None]
  - Hypotension [None]
  - Pulseless electrical activity [None]
  - Coronary artery thrombosis [None]
